FAERS Safety Report 25574854 (Version 1)
Quarter: 2025Q3

REPORT INFORMATION
  Report Type: Spontaneous
  Country: US (occurrence: US)
  Receive Date: 20250718
  Receipt Date: 20250718
  Transmission Date: 20251021
  Serious: Yes (Death, Hospitalization, Other)
  Sender: AMNEAL
  Company Number: US-AMNEAL PHARMACEUTICALS-2025-AMRX-02651

PATIENT
  Age: 48 Year
  Sex: Female

DRUGS (2)
  1. BUPROPION HYDROCHLORIDE SR [Suspect]
     Active Substance: BUPROPION HYDROCHLORIDE
     Indication: Product used for unknown indication
     Route: 065
  2. PROPRANOLOL [Concomitant]
     Active Substance: PROPRANOLOL HYDROCHLORIDE
     Indication: Product used for unknown indication
     Route: 065

REACTIONS (8)
  - Cardiogenic shock [Fatal]
  - Bundle branch block right [Fatal]
  - Metabolic acidosis [Fatal]
  - Bundle branch block left [Fatal]
  - Ventricular tachycardia [Fatal]
  - Overdose [Fatal]
  - Completed suicide [Fatal]
  - Electrocardiogram QRS complex prolonged [Fatal]
